FAERS Safety Report 7312607-2 (Version None)
Quarter: 2011Q1

REPORT INFORMATION
  Report Type: 
  Country: None (occurrence: None)
  Receive Date: 20110224
  Receipt Date: 20100414
  Transmission Date: 20110831
  Serious: No
  Sender: FDA-Public Use
  Company Number: US-MYLANLABS-2010S1006355

PATIENT
  Sex: Male
  Weight: 96.62 kg

DRUGS (6)
  1. ATENOLOL [Suspect]
     Route: 048
     Dates: start: 20100301, end: 20100301
  2. ATENOLOL [Suspect]
     Indication: EXTRASYSTOLES
     Route: 048
     Dates: start: 20060101, end: 20100301
  3. ATENOLOL [Suspect]
     Route: 048
     Dates: start: 20100320
  4. ATENOLOL [Suspect]
     Indication: LABILE HYPERTENSION
     Route: 048
     Dates: start: 20060101, end: 20100301
  5. ATENOLOL [Suspect]
     Route: 048
     Dates: start: 20100301, end: 20100301
  6. ATENOLOL [Suspect]
     Route: 048
     Dates: start: 20100320

REACTIONS (6)
  - HEART RATE INCREASED [None]
  - REBOUND EFFECT [None]
  - CHEST DISCOMFORT [None]
  - BLOOD PRESSURE INCREASED [None]
  - DRUG INEFFECTIVE [None]
  - PALPITATIONS [None]
